FAERS Safety Report 9820122 (Version 1)
Quarter: 2014Q1

REPORT INFORMATION
  Report Type: Spontaneous
  Country: US (occurrence: None)
  Receive Date: 20140113
  Receipt Date: 20140113
  Transmission Date: 20141002
  Serious: Yes (Disabling)
  Sender: FDA-Public Use
  Company Number: None

PATIENT
  Age: 65 Year
  Sex: Female
  Weight: 92.99 kg

DRUGS (1)
  1. FLUTICASONE PROPRIONATE NASAL [Suspect]
     Indication: SINUSITIS
     Dosage: ONE SPRAY @ NOSTRIL, NASAL SPRAY
     Route: 045
     Dates: start: 20140105, end: 20140109

REACTIONS (4)
  - Epistaxis [None]
  - Swelling [None]
  - Sinus disorder [None]
  - Nasal congestion [None]
